FAERS Safety Report 19470339 (Version 1)
Quarter: 2021Q2

REPORT INFORMATION
  Report Type: Spontaneous
  Country: PT (occurrence: PT)
  Receive Date: 20210629
  Receipt Date: 20210629
  Transmission Date: 20210717
  Serious: Yes (Hospitalization, Other)
  Sender: FDA-Public Use
  Company Number: PT-AUROBINDO-AUR-APL-2021-026626

PATIENT
  Age: 79 Year
  Sex: Male

DRUGS (1)
  1. ROPIVACAINE. [Suspect]
     Active Substance: ROPIVACAINE HYDROCHLORIDE
     Indication: LOCAL ANAESTHESIA
     Dosage: 3.5 ML
     Route: 065

REACTIONS (9)
  - Hypertension [Recovered/Resolved]
  - Tremor [Recovered/Resolved]
  - Myoclonus [Recovered/Resolved]
  - Disorientation [Recovered/Resolved]
  - Amylase increased [Recovered/Resolved]
  - Dermatitis [Recovered/Resolved]
  - Lipase increased [Recovered/Resolved]
  - Tachyarrhythmia [Recovered/Resolved]
  - Local anaesthetic systemic toxicity [Recovered/Resolved]
